FAERS Safety Report 9175999 (Version 2)
Quarter: 2013Q2

REPORT INFORMATION
  Report Type: Report from Study
  Country: JP (occurrence: JP)
  Receive Date: 20130320
  Receipt Date: 20130523
  Transmission Date: 20140414
  Serious: Yes (Death)
  Sender: FDA-Public Use
  Company Number: JP-GILEAD-2013-0071509

PATIENT
  Age: 83 Year
  Sex: Female

DRUGS (4)
  1. AMBRISENTAN [Suspect]
     Indication: PULMONARY ARTERIAL HYPERTENSION
     Dosage: 2.5 MG, QD
     Route: 048
     Dates: start: 20120222, end: 20120309
  2. REVATIO [Concomitant]
     Indication: PULMONARY ARTERIAL HYPERTENSION
     Route: 048
     Dates: start: 20120125, end: 20120309
  3. CODEINE PHOSPHATE [Concomitant]
     Dosage: UNK
     Route: 048
     Dates: end: 20120309
  4. CYSTANIN [Concomitant]
     Route: 048
     Dates: end: 20120309

REACTIONS (2)
  - Pneumonia [Fatal]
  - Liver disorder [Recovering/Resolving]
